FAERS Safety Report 21985197 (Version 1)
Quarter: 2023Q1

REPORT INFORMATION
  Report Type: Spontaneous
  Country: US (occurrence: None)
  Receive Date: 20230210
  Receipt Date: 20230210
  Transmission Date: 20230418
  Serious: Yes (Life-Threatening, Hospitalization)
  Sender: FDA-Public Use
  Company Number: None

PATIENT
  Sex: Male

DRUGS (2)
  1. CLOZAPINE [Suspect]
     Active Substance: CLOZAPINE
  2. AMIODARONE [Concomitant]
     Active Substance: AMIODARONE

REACTIONS (7)
  - Mental status changes [None]
  - Cardiomyopathy [None]
  - Bundle branch block left [None]
  - Atrial fibrillation [None]
  - Electrocardiogram QT prolonged [None]
  - Therapy cessation [None]
  - Therapy change [None]

NARRATIVE: CASE EVENT DATE: 20230206
